FAERS Safety Report 20567720 (Version 2)
Quarter: 2022Q2

REPORT INFORMATION
  Report Type: Spontaneous
  Country: US (occurrence: US)
  Receive Date: 20220308
  Receipt Date: 20220614
  Transmission Date: 20220721
  Serious: Yes (Death, Other)
  Sender: FDA-Public Use
  Company Number: US-GILEAD-2022-0572229

PATIENT
  Age: 43 Year
  Sex: Female
  Weight: 113.38 kg

DRUGS (8)
  1. VEKLURY [Suspect]
     Active Substance: REMDESIVIR
     Indication: Product used for unknown indication
     Dosage: 200 MG, ONCE
     Route: 042
     Dates: start: 20201210, end: 20201210
  2. VEKLURY [Suspect]
     Active Substance: REMDESIVIR
     Dosage: 100 MG, QD
     Route: 042
     Dates: start: 20201211, end: 20201213
  3. FUROSEMIDE [Concomitant]
     Active Substance: FUROSEMIDE
     Dosage: 80 MG
     Route: 042
     Dates: start: 20201214, end: 20201214
  4. CALCIUM GLUCONATE [Concomitant]
     Active Substance: CALCIUM GLUCONATE
     Dosage: 1 UNK
     Route: 042
     Dates: start: 20201214, end: 20201214
  5. AMIODARONE [Concomitant]
     Active Substance: AMIODARONE
     Dosage: 150 MG
     Route: 042
     Dates: start: 20201214, end: 20201214
  6. DIPHENHYDRAMINE [Concomitant]
     Active Substance: DIPHENHYDRAMINE
     Dosage: 25 MG
     Route: 042
     Dates: start: 20201213, end: 20201214
  7. METOPROLOL TARTRATE [Concomitant]
     Active Substance: METOPROLOL TARTRATE
     Dosage: 5 MG
     Route: 042
     Dates: start: 20201212, end: 20201214
  8. PROPOFOL [Concomitant]
     Active Substance: PROPOFOL
     Dosage: 1000 MG
     Route: 042
     Dates: start: 20201211, end: 20201211

REACTIONS (4)
  - Multiple organ dysfunction syndrome [Fatal]
  - COVID-19 [Fatal]
  - Acute kidney injury [Not Recovered/Not Resolved]
  - Hepatic enzyme increased [Not Recovered/Not Resolved]

NARRATIVE: CASE EVENT DATE: 20201212
